FAERS Safety Report 6835486-6 (Version None)
Quarter: 2010Q3

REPORT INFORMATION
  Report Type: 
  Country: None (occurrence: None)
  Receive Date: 20100713
  Receipt Date: 20100629
  Transmission Date: 20110219
  Serious: Yes (Other)
  Sender: FDA-Public Use
  Company Number: PHHY2010DE42867

PATIENT
  Age: 64 Year
  Sex: Female

DRUGS (4)
  1. ZOLEDRONATE [Suspect]
     Indication: BREAST CANCER
     Route: 065
  2. PAMIDRONATE DISODIUM [Suspect]
     Indication: BREAST CANCER
     Route: 065
  3. CHEMOTHERAPEUTICS NOS [Concomitant]
  4. STEROIDS NOS [Concomitant]

REACTIONS (4)
  - BONE DISORDER [None]
  - BONE LESION EXCISION [None]
  - IMPAIRED HEALING [None]
  - OSTEONECROSIS OF JAW [None]
